FAERS Safety Report 5315999-9 (Version None)
Quarter: 2007Q2

REPORT INFORMATION
  Report Type: 
  Country: None (occurrence: None)
  Receive Date: 20070503
  Receipt Date: 20070423
  Transmission Date: 20071010
  Serious: Yes (Other)
  Sender: FDA-Public Use
  Company Number: DE-SANOFI-SYNTHELABO-A04200700664

PATIENT
  Sex: Female

DRUGS (1)
  1. STILNOX [Suspect]
     Indication: DRUG USE FOR UNKNOWN INDICATION
     Dosage: UNK
     Route: 048

REACTIONS (4)
  - AMNESIA [None]
  - DELIRIUM [None]
  - DRUG ABUSER [None]
  - DRUG DEPENDENCE [None]
